FAERS Safety Report 19350363 (Version 1)
Quarter: 2021Q2

REPORT INFORMATION
  Report Type: Report from Study
  Country: US (occurrence: US)
  Receive Date: 20210531
  Receipt Date: 20210531
  Transmission Date: 20210717
  Serious: Yes (Hospitalization)
  Sender: FDA-Public Use
  Company Number: US-ROCHE-2660467

PATIENT
  Age: 65 Year
  Sex: Male
  Weight: 92 kg

DRUGS (16)
  1. TOCILIZUMAB. [Suspect]
     Active Substance: TOCILIZUMAB
     Indication: COVID-19
     Dosage: DOSE ADMINISTERED: 736 MG
     Route: 042
     Dates: start: 20200522, end: 20200522
  2. AMLODIPINE [Concomitant]
     Active Substance: AMLODIPINE BESYLATE
  3. ATROVENT [Concomitant]
     Active Substance: IPRATROPIUM BROMIDE
  4. LOVENOX [Concomitant]
     Active Substance: ENOXAPARIN SODIUM
     Dates: start: 20200523
  5. LASIX [Concomitant]
     Active Substance: FUROSEMIDE
     Dates: start: 20200527
  6. MELATONIN [Concomitant]
     Active Substance: MELATONIN
     Dates: start: 20200521
  7. IRBESARTAN. [Concomitant]
     Active Substance: IRBESARTAN
  8. METOPROLOL. [Concomitant]
     Active Substance: METOPROLOL
     Dates: start: 20200524
  9. VITAMIN D3 [Concomitant]
     Active Substance: CHOLECALCIFEROL
  10. REMDESIVIR. [Concomitant]
     Active Substance: REMDESIVIR
     Dates: start: 20200522
  11. ATENOLOL. [Concomitant]
     Active Substance: ATENOLOL
  12. ZINC. [Concomitant]
     Active Substance: ZINC
  13. ASPIRIN. [Concomitant]
     Active Substance: ASPIRIN
  14. ENOXAPARIN [Concomitant]
     Active Substance: ENOXAPARIN
  15. VITAMIN C [Concomitant]
     Active Substance: ASCORBIC ACID
  16. ALBUTEROL. [Concomitant]
     Active Substance: ALBUTEROL

REACTIONS (1)
  - Infection [Recovered/Resolved]

NARRATIVE: CASE EVENT DATE: 20200618
